FAERS Safety Report 25205108 (Version 1)
Quarter: 2025Q2

REPORT INFORMATION
  Report Type: Spontaneous
  Country: CN (occurrence: CN)
  Receive Date: 20250416
  Receipt Date: 20250416
  Transmission Date: 20250717
  Serious: Yes (Hospitalization, Other)
  Sender: BAXTER
  Company Number: None

PATIENT
  Age: 49 Year
  Sex: Female
  Weight: 45 kg

DRUGS (4)
  1. CYCLOPHOSPHAMIDE [Suspect]
     Active Substance: CYCLOPHOSPHAMIDE
     Indication: Breast cancer female
     Dosage: 800 MG, QD, D1,Q14 CHEMOTHERAPY FOR 1 CYCLE
     Route: 041
     Dates: start: 20250320, end: 20250320
  2. DEXTROSE [Suspect]
     Active Substance: DEXTROSE MONOHYDRATE
     Dosage: 100 ML, QD, 5% INJECTION, D1, Q14 CHEMOTHERAPY FOR 1 CYCLE + PIRARUBICIN HYDROCHLORIDE FOR INJECTION
     Route: 041
     Dates: start: 20250320, end: 20250320
  3. SODIUM CHLORIDE [Suspect]
     Active Substance: SODIUM CHLORIDE
     Dosage: 100 ML, QD, 0.9% INJECTION, D1,Q14, CHEMOTHERAPY FOR 1 CYCLE + CYCLOPHOSPHAMIDE FOR INJECTION 800MG
     Route: 041
     Dates: start: 20250320, end: 20250320
  4. PIRARUBICIN HYDROCHLORIDE [Suspect]
     Active Substance: PIRARUBICIN HYDROCHLORIDE
     Indication: Breast cancer female
     Dosage: 80 MG, QD, D1, Q14 CHEMOTHERAPY FOR 1 CYCLE.
     Route: 041
     Dates: start: 20250320, end: 20250320

REACTIONS (1)
  - Myelosuppression [Recovering/Resolving]

NARRATIVE: CASE EVENT DATE: 20250327
